FAERS Safety Report 7079157-2 (Version None)
Quarter: 2010Q4

REPORT INFORMATION
  Report Type: 
  Country: None (occurrence: None)
  Receive Date: 20101102
  Receipt Date: 20101025
  Transmission Date: 20110411
  Serious: Yes (Other)
  Sender: FDA-Public Use
  Company Number: A0889827A

PATIENT
  Age: 42 Year
  Sex: Male

DRUGS (2)
  1. AUGMENTIN '125' [Suspect]
     Indication: CELLULITIS
     Dosage: 875MG UNKNOWN
     Route: 065
     Dates: start: 20100901, end: 20101003
  2. LOVENOX [Suspect]
     Indication: DEEP VEIN THROMBOSIS
     Dosage: 80MG TWICE PER DAY
     Route: 065
     Dates: start: 20100901

REACTIONS (4)
  - CELLULITIS [None]
  - ERYTHEMA [None]
  - PRURITUS [None]
  - RASH GENERALISED [None]
